FAERS Safety Report 9773274 (Version 2)
Quarter: 2014Q1

REPORT INFORMATION
  Report Type: Report from Study
  Country: DE (occurrence: DE)
  Receive Date: 20131219
  Receipt Date: 20140225
  Transmission Date: 20141002
  Serious: Yes (Hospitalization)
  Sender: FDA-Public Use
  Company Number: DE-VIIV HEALTHCARE LIMITED-B0954017A

PATIENT
  Age: 65 Year
  Sex: Male
  Weight: 67 kg

DRUGS (8)
  1. MARAVIROC [Suspect]
     Indication: HIV INFECTION
     Dosage: 150MG TWICE PER DAY
     Route: 048
     Dates: start: 20100330, end: 20121025
  2. PREZISTA [Concomitant]
     Indication: HIV INFECTION
     Dosage: 800MG PER DAY
     Route: 048
     Dates: start: 20120516
  3. NORVIR [Concomitant]
     Indication: HIV INFECTION
     Dosage: 100MG PER DAY
     Route: 048
     Dates: start: 20120516
  4. KIVEXA [Concomitant]
     Indication: HIV INFECTION
     Route: 048
     Dates: start: 20120516
  5. BISOPROLOL [Concomitant]
     Indication: HYPERTENSION
     Route: 048
  6. SPIRONOLACTON [Concomitant]
     Indication: ASCITES
     Route: 048
  7. VIT B12 [Concomitant]
     Indication: HYPOVITAMINOSIS
     Route: 030
  8. COLECALCIFEROL [Concomitant]
     Indication: HYPOVITAMINOSIS
     Route: 048

REACTIONS (1)
  - Thyroid cancer [Recovered/Resolved]
